FAERS Safety Report 7814462-0 (Version None)
Quarter: 2011Q4

REPORT INFORMATION
  Report Type: 
  Country: None (occurrence: None)
  Receive Date: 20111014
  Receipt Date: 20111007
  Transmission Date: 20120403
  Serious: Yes (Death)
  Sender: FDA-Public Use
  Company Number: PHHY2011JP82174

PATIENT
  Sex: Male
  Weight: 64 kg

DRUGS (7)
  1. DIOVAN [Suspect]
     Indication: HYPERTENSION
     Dosage: 160 MG, QD
     Route: 048
     Dates: start: 20090127, end: 20100329
  2. ALDACTONE [Concomitant]
     Dosage: 50 MG, UNK
     Route: 048
     Dates: start: 20101228
  3. LASIX [Concomitant]
     Dosage: 40 MG, UNK
     Route: 048
     Dates: start: 20101228
  4. CRESTOR [Concomitant]
     Dosage: 2.5 MG, UNK
     Route: 048
     Dates: start: 20080805, end: 20101113
  5. DIOVAN [Suspect]
     Dosage: 80 MG, QD
     Route: 048
     Dates: start: 20100330, end: 20101214
  6. NORVASC [Concomitant]
     Dosage: 05 MG, UNK
     Route: 048
     Dates: start: 20090303, end: 20091109
  7. ATELEC [Concomitant]
     Dosage: 20 MG, UNK
     Route: 048
     Dates: start: 20070117, end: 20090126

REACTIONS (3)
  - LARGE INTESTINE CARCINOMA [None]
  - ASCITES [None]
  - METASTASES TO PERITONEUM [None]
